FAERS Safety Report 9775509 (Version 1)
Quarter: 2013Q4

REPORT INFORMATION
  Report Type: Spontaneous
  Country: GB (occurrence: GB)
  Receive Date: 20131220
  Receipt Date: 20131220
  Transmission Date: 20140711
  Serious: Yes (Life-Threatening, Other)
  Sender: FDA-Public Use
  Company Number: GB-PFIZER INC-2013363649

PATIENT
  Age: 46 Year
  Sex: Female
  Weight: 63 kg

DRUGS (5)
  1. LYRICA [Suspect]
     Indication: NEURALGIA
     Dosage: 600 MG, UNK
     Route: 048
     Dates: start: 20130912, end: 20131209
  2. TRAMADOL [Concomitant]
     Dosage: UNK
  3. GABAPENTIN [Concomitant]
     Dosage: UNK
  4. PARACETAMOL [Concomitant]
     Dosage: UNK
  5. LIDOCAINE [Concomitant]
     Dosage: UNK

REACTIONS (7)
  - Cardiac failure congestive [Recovering/Resolving]
  - Pulmonary oedema [Recovering/Resolving]
  - Dyspnoea [Recovering/Resolving]
  - Fluid retention [Recovering/Resolving]
  - Local swelling [Recovering/Resolving]
  - Swelling face [Recovering/Resolving]
  - Fatigue [Recovering/Resolving]
